FAERS Safety Report 21158477 (Version 3)
Quarter: 2022Q4

REPORT INFORMATION
  Report Type: Report from Study
  Country: CN (occurrence: CN)
  Receive Date: 20220801
  Receipt Date: 20221004
  Transmission Date: 20230113
  Serious: Yes (Hospitalization)
  Sender: FDA-Public Use
  Company Number: CN-BRISTOL-MYERS SQUIBB COMPANY-2022-080731

PATIENT
  Age: 44 Year
  Sex: Female
  Weight: 45 kg

DRUGS (14)
  1. IPILIMUMAB [Suspect]
     Active Substance: IPILIMUMAB
     Indication: Pleural mesothelioma
     Route: 042
     Dates: start: 20220701
  2. DICLOFENAC SODIUM [Concomitant]
     Active Substance: DICLOFENAC SODIUM
     Indication: Product used for unknown indication
     Route: 048
     Dates: start: 20220614
  3. VITAMIN C [Concomitant]
     Active Substance: ASCORBIC ACID
     Indication: Product used for unknown indication
     Dosage: 0.1 MG THREE TIMES A DAY
     Route: 048
     Dates: start: 20220701
  4. FUROSEMIDE [Concomitant]
     Active Substance: FUROSEMIDE
     Indication: Product used for unknown indication
     Route: 048
     Dates: start: 20220702
  5. BISOPROLOL [Concomitant]
     Active Substance: BISOPROLOL
     Indication: Agitation
     Route: 048
     Dates: start: 20220721
  6. HUMAN INTERLEUKIN [Concomitant]
     Indication: Platelet count decreased
     Dosage: DAILY
     Route: 058
     Dates: start: 20220719, end: 20220725
  7. RECOMBINANT HUMAN THROMBOPOIETIN INJECTION [Concomitant]
     Indication: Platelet count decreased
     Dosage: DAILY
     Route: 058
     Dates: start: 20220719, end: 20220727
  8. MAGNESIUM ISOGLYCYRRHIZINATE [Concomitant]
     Active Substance: MAGNESIUM ISOGLYCYRRHIZINATE
     Indication: Liver function test abnormal
     Dosage: DAILY
     Route: 041
     Dates: start: 20220719, end: 20220725
  9. HEPARIN CALCIUM [Concomitant]
     Active Substance: HEPARIN CALCIUM
     Indication: Hypercoagulation
     Dosage: DAILY
     Route: 041
     Dates: start: 20220719, end: 20220727
  10. METOPROLOL [Concomitant]
     Active Substance: METOPROLOL
     Indication: Agitation
     Dosage: DAILY
     Route: 048
     Dates: start: 20220721, end: 20220721
  11. ZOLEDRONIC ACID POWDER FOR INJECTION [Concomitant]
     Indication: Product used for unknown indication
     Dosage: ONCE
     Route: 041
     Dates: start: 20220720, end: 20220720
  12. METOCLOPRAMIDE [Concomitant]
     Active Substance: METOCLOPRAMIDE
     Indication: Vomiting
     Dosage: ONCE
     Route: 030
     Dates: start: 20220720, end: 20220720
  13. DEXAMETHASONE SODIUM PHOSPHATE POWDER FOR INJECTION [Concomitant]
     Indication: Pyrexia
     Dosage: ONCE
     Route: 040
     Dates: start: 20220720, end: 20220720
  14. PARACETAMOL PSEUDO MAMEFEN TABLETS/AMINO MAMEMIN TABLETS [Concomitant]
     Indication: Pyrexia
     Dosage: 1DF=1 TABLET,DAILY,ONCE
     Route: 048
     Dates: start: 20220720, end: 20220720

REACTIONS (1)
  - Anaemia [Recovering/Resolving]

NARRATIVE: CASE EVENT DATE: 20220721
